FAERS Safety Report 7304714-5 (Version None)
Quarter: 2011Q1

REPORT INFORMATION
  Report Type: 
  Country: None (occurrence: None)
  Receive Date: 20110222
  Receipt Date: 20110215
  Transmission Date: 20110831
  Serious: No
  Sender: FDA-Public Use
  Company Number: US-PFIZER INC-2010117239

PATIENT
  Sex: Female

DRUGS (2)
  1. DIFLUCAN [Suspect]
     Indication: CANDIDIASIS
     Dosage: 150 MG, WEEKLY
     Route: 048
     Dates: start: 20100710, end: 20100807
  2. ZANTAC [Concomitant]
     Dosage: UNK

REACTIONS (5)
  - RASH [None]
  - PRURITUS [None]
  - SKIN BURNING SENSATION [None]
  - NAUSEA [None]
  - OEDEMA PERIPHERAL [None]
